FAERS Safety Report 8158493-2 (Version None)
Quarter: 2012Q1

REPORT INFORMATION
  Report Type: 
  Country: None (occurrence: None)
  Receive Date: 20120223
  Receipt Date: 20120221
  Transmission Date: 20120608
  Serious: No
  Sender: FDA-Public Use
  Company Number: US-PFIZER INC-2012046947

PATIENT
  Sex: Female
  Weight: 68.027 kg

DRUGS (5)
  1. LOSARTAN [Concomitant]
     Indication: HYPERTENSION
     Dosage: 50MG, UNK
  2. SIMVASTATIN [Concomitant]
     Indication: BLOOD CHOLESTEROL INCREASED
     Dosage: 40MG, UNK
  3. CHANTIX [Suspect]
     Indication: SMOKING CESSATION THERAPY
     Dosage: 0.5 MG, DAILY
     Route: 048
     Dates: start: 20110301, end: 20110301
  4. LORTAB [Concomitant]
     Indication: HEADACHE
     Dosage: 5/500 MG
  5. ASPIRIN [Concomitant]
     Indication: ANTICOAGULANT THERAPY
     Dosage: 81MG, UNK

REACTIONS (1)
  - NIGHTMARE [None]
